FAERS Safety Report 4824154-8 (Version None)
Quarter: 2005Q4

REPORT INFORMATION
  Report Type: 
  Country: None (occurrence: None)
  Receive Date: 20051108
  Receipt Date: 20051025
  Transmission Date: 20060501
  Serious: Yes (Other)
  Sender: FDA-Public Use
  Company Number: USA0510111863

PATIENT
  Age: 69 Year
  Sex: Female

DRUGS (2)
  1. FORTEO [Suspect]
     Indication: OSTEOPOROSIS
     Dates: start: 20041001
  2. METHOTREXATE [Concomitant]

REACTIONS (3)
  - AUTOIMMUNE DISORDER [None]
  - CONDITION AGGRAVATED [None]
  - LIVER DISORDER [None]
